FAERS Safety Report 7512557-2 (Version None)
Quarter: 2011Q2

REPORT INFORMATION
  Report Type: 
  Country: None (occurrence: None)
  Receive Date: 20110520
  Receipt Date: 20110512
  Transmission Date: 20111010
  Serious: Yes (Hospitalization, Disabling)
  Sender: FDA-Public Use
  Company Number: 2010SP055002

PATIENT
  Age: 23 Year
  Sex: Female
  Weight: 117.9352 kg

DRUGS (2)
  1. NUVARING [Suspect]
     Indication: CONTRACEPTION
     Dates: start: 20091126, end: 20100301
  2. NUVARING [Suspect]
     Indication: MENSTRUAL CYCLE MANAGEMENT
     Dates: start: 20091126, end: 20100301

REACTIONS (30)
  - TOTAL LUNG CAPACITY DECREASED [None]
  - ATELECTASIS [None]
  - FACIAL BONES FRACTURE [None]
  - SWELLING FACE [None]
  - PULMONARY EMBOLISM [None]
  - DYSPNOEA [None]
  - SINUS HEADACHE [None]
  - SCOLIOSIS [None]
  - PLEURAL EFFUSION [None]
  - GROIN PAIN [None]
  - VICTIM OF CRIME [None]
  - PULMONARY INFARCTION [None]
  - NODULE [None]
  - BACK PAIN [None]
  - HYPERCOAGULATION [None]
  - IMPAIRED WORK ABILITY [None]
  - THROMBOSIS [None]
  - MIGRAINE [None]
  - EYE SWELLING [None]
  - UNEVALUABLE EVENT [None]
  - DEPRESSION [None]
  - LUNG INFILTRATION [None]
  - LUNG NEOPLASM [None]
  - ALVEOLITIS ALLERGIC [None]
  - PNEUMONIA [None]
  - FACE INJURY [None]
  - FRACTURE DISPLACEMENT [None]
  - VARICOSE VEIN [None]
  - PULMONARY HAEMORRHAGE [None]
  - OEDEMA PERIPHERAL [None]
